FAERS Safety Report 6204763-4 (Version None)
Quarter: 2009Q2

REPORT INFORMATION
  Report Type: 
  Country: None (occurrence: None)
  Receive Date: 20090527
  Receipt Date: 20090419
  Transmission Date: 20091009
  Serious: Yes (Hospitalization, Other)
  Sender: FDA-Public Use
  Company Number: US-PFIZER INC-2008016846

PATIENT
  Sex: Female
  Weight: 97.5 kg

DRUGS (26)
  1. CHANTIX [Suspect]
     Route: 048
     Dates: start: 20080201, end: 20080501
  2. COFFEE [Suspect]
  3. NORETHINDRONE [Suspect]
     Indication: MENSTRUAL DISORDER
     Dates: start: 20080701
  4. OXYCODONE [Suspect]
     Indication: PAIN
     Dates: start: 20080823
  5. HALDOL [Concomitant]
     Indication: MENTAL DISORDER
     Route: 048
  6. HALDOL [Concomitant]
  7. ZYPREXA [Concomitant]
     Route: 048
  8. MIRTAZAPINE [Concomitant]
  9. ZOCOR [Concomitant]
  10. COGENTIN [Concomitant]
  11. HYDROXYZINE [Concomitant]
  12. KLONOPIN [Concomitant]
  13. PRILOSEC [Concomitant]
  14. DARVOCET [Concomitant]
  15. MOTRIN [Concomitant]
  16. POTASSIUM CHLORIDE [Concomitant]
  17. TOPROL-XL [Concomitant]
  18. ALL OTHER THERAPEUTIC PRODUCTS [Concomitant]
  19. METFORMIN HCL [Concomitant]
     Indication: DIABETES MELLITUS
  20. SIMVASTATIN [Concomitant]
     Indication: BLOOD CHOLESTEROL
  21. TOPROL-XL [Concomitant]
     Indication: HYPERTENSION
  22. VISTARIL [Concomitant]
  23. CORTISONE [Concomitant]
  24. NITROGLYCERIN [Concomitant]
  25. BECLAMIDE [Concomitant]
  26. NICOTINE [Concomitant]

REACTIONS (98)
  - ABDOMINAL PAIN UPPER [None]
  - ABNORMAL BEHAVIOUR [None]
  - ABNORMAL DREAMS [None]
  - ABORTION SPONTANEOUS [None]
  - ACTIVITIES OF DAILY LIVING IMPAIRED [None]
  - AGITATION [None]
  - ALOPECIA [None]
  - AMNESIA [None]
  - ANGER [None]
  - ANXIETY [None]
  - ARTHRITIS [None]
  - ARTHROPATHY [None]
  - BACK PAIN [None]
  - BED REST [None]
  - BLOOD CHOLESTEROL DECREASED [None]
  - BLOOD GLUCOSE DECREASED [None]
  - BLOOD GLUCOSE INCREASED [None]
  - BLOOD PRESSURE INCREASED [None]
  - BRONCHITIS [None]
  - CHEST PAIN [None]
  - CONVULSION [None]
  - DEPRESSED MOOD [None]
  - DEPRESSION [None]
  - DIARRHOEA [None]
  - DISTURBANCE IN ATTENTION [None]
  - DRUG INEFFECTIVE [None]
  - DRUG INTOLERANCE [None]
  - DRY MOUTH [None]
  - DRY THROAT [None]
  - DYSARTHRIA [None]
  - DYSPNOEA [None]
  - ELECTROENCEPHALOGRAM ABNORMAL [None]
  - EMOTIONAL DISORDER [None]
  - ENURESIS [None]
  - EUPHORIC MOOD [None]
  - EXERCISE LACK OF [None]
  - FATIGUE [None]
  - FEELING ABNORMAL [None]
  - FEELING COLD [None]
  - FIBROMYALGIA [None]
  - FRUSTRATION [None]
  - GAIT DISTURBANCE [None]
  - GENERAL PHYSICAL HEALTH DETERIORATION [None]
  - GLYCOSYLATED HAEMOGLOBIN INCREASED [None]
  - HALLUCINATION [None]
  - HALLUCINATION, AUDITORY [None]
  - HEADACHE [None]
  - HEART RATE INCREASED [None]
  - HOMICIDAL IDEATION [None]
  - HORMONE LEVEL ABNORMAL [None]
  - HYPERSENSITIVITY [None]
  - HYPERSOMNIA [None]
  - HYPOTENSION [None]
  - ILL-DEFINED DISORDER [None]
  - INCREASED APPETITE [None]
  - INFLUENZA LIKE ILLNESS [None]
  - INSOMNIA [None]
  - IRRITABILITY [None]
  - LICE INFESTATION [None]
  - MALAISE [None]
  - MANIA [None]
  - MEDICATION ERROR [None]
  - MEMORY IMPAIRMENT [None]
  - MENOPAUSE [None]
  - MENORRHAGIA [None]
  - MENSTRUAL DISORDER [None]
  - MENTAL DISORDER [None]
  - MENTAL IMPAIRMENT [None]
  - MOOD ALTERED [None]
  - MUSCLE TIGHTNESS [None]
  - MUSCULOSKELETAL STIFFNESS [None]
  - NAUSEA [None]
  - NERVOUSNESS [None]
  - NICOTINE DEPENDENCE [None]
  - PAIN [None]
  - PAIN IN EXTREMITY [None]
  - PANIC ATTACK [None]
  - PARAESTHESIA [None]
  - PAROSMIA [None]
  - POLYDIPSIA [None]
  - PYREXIA [None]
  - ROAD TRAFFIC ACCIDENT [None]
  - SLEEP DISORDER [None]
  - SLEEP TALKING [None]
  - SOMNAMBULISM [None]
  - SOMNOLENCE [None]
  - STRESS [None]
  - TENSION [None]
  - THROMBOSIS [None]
  - TOBACCO USER [None]
  - TRANSIENT ISCHAEMIC ATTACK [None]
  - URINARY TRACT INFECTION [None]
  - VIRAL INFECTION [None]
  - VISUAL IMPAIRMENT [None]
  - VULVOVAGINAL BURNING SENSATION [None]
  - WEIGHT DECREASED [None]
  - WEIGHT INCREASED [None]
  - WITHDRAWAL SYNDROME [None]
